FAERS Safety Report 4577223-4 (Version None)
Quarter: 2005Q1

REPORT INFORMATION
  Report Type: 
  Country: None (occurrence: None)
  Receive Date: 20050209
  Receipt Date: 20050126
  Transmission Date: 20050727
  Serious: Yes (Death)
  Sender: FDA-Public Use
  Company Number: 2004AL000736

PATIENT
  Age: 68 Year
  Sex: Male

DRUGS (1)
  1. THEOPHYLLINE ELIXIR LIQUID [Suspect]
     Dosage: PO
     Route: 048

REACTIONS (6)
  - ACUTE MYOCARDIAL INFARCTION [None]
  - DRUG TOXICITY [None]
  - HYPOTENSION [None]
  - MEDICATION ERROR [None]
  - METABOLIC ACIDOSIS [None]
  - SINUS TACHYCARDIA [None]
